FAERS Safety Report 9174842 (Version 1)
Quarter: 2013Q1

REPORT INFORMATION
  Report Type: Report from Study
  Country: FR (occurrence: FR)
  Receive Date: 20130320
  Receipt Date: 20130320
  Transmission Date: 20140127
  Serious: Yes (Hospitalization)
  Sender: FDA-Public Use
  Company Number: FR-009507513-1303FRA008062

PATIENT
  Age: 41 Year
  Sex: Male
  Weight: 76.4 kg

DRUGS (5)
  1. RIBAVIRIN [Suspect]
     Route: 048
  2. REBETOL [Suspect]
     Indication: HEPATITIS C
     Route: 048
  3. VIRAFERONPEG [Suspect]
     Indication: HEPATITIS C
     Route: 058
  4. APROVEL [Concomitant]
     Indication: HYPERTENSION
     Dosage: 150 MG, QD
     Dates: start: 20080701
  5. STAGID [Concomitant]
     Indication: DIABETES MELLITUS
     Dosage: 700 MG, BID
     Dates: end: 200804

REACTIONS (1)
  - Diabetes mellitus inadequate control [Recovered/Resolved]
